FAERS Safety Report 8876962 (Version 1)
Quarter: 2012Q4

REPORT INFORMATION
  Report Type: 
  Country: None (occurrence: None)
  Receive Date: 20121030
  Receipt Date: 20121030
  Transmission Date: 20130627
  Serious: Yes (Other)
  Sender: FDA-Public Use
  Company Number: RS-MYLANLABS-2012S1021810

PATIENT
  Age: 13 Year
  Sex: Female

DRUGS (3)
  1. FLUOROURACIL [Suspect]
     Indication: COLON CANCER
     Dosage: 600mg/m2 days 1 and 2
     Route: 065
  2. OXALIPLATIN [Suspect]
     Indication: COLON CANCER
     Dosage: 85mg/m2 on day 1
     Route: 065
  3. FOLINIC ACID [Suspect]
     Indication: COLON CANCER
     Dosage: 200mg/m2 on days 1 and 2
     Route: 065

REACTIONS (3)
  - Bone marrow failure [Unknown]
  - Nausea [Unknown]
  - Paraesthesia [Unknown]
